FAERS Safety Report 15001399 (Version 2)
Quarter: 2018Q2

REPORT INFORMATION
  Report Type: Spontaneous
  Country: GB (occurrence: GB)
  Receive Date: 20180612
  Receipt Date: 20180628
  Transmission Date: 20180711
  Serious: Yes (Other)
  Sender: FDA-Public Use
  Company Number: GB-PFIZER INC-2018234926

PATIENT
  Age: 26 Year
  Sex: Female
  Weight: 64 kg

DRUGS (11)
  1. ADAPALENE. [Concomitant]
     Active Substance: ADAPALENE
     Indication: ACNE
     Dosage: APPLY AT NIGHT
     Dates: start: 20171004
  2. AMOXICILLIN. [Concomitant]
     Active Substance: AMOXICILLIN
     Indication: ANTIBIOTIC THERAPY
     Dosage: 30 ML, 1X/DAY
     Dates: start: 20180129, end: 20180205
  3. EPADERM [Concomitant]
     Active Substance: MINERAL OIL\PETROLATUM\WAX, EMULSIFYING
     Dosage: APPLY FREQUENTLY SEVERAL TIMES THROUGHOUT THE DAY
     Dates: start: 20180129, end: 20180330
  4. PERMETHRIN. [Concomitant]
     Active Substance: PERMETHRIN
     Dosage: APPLY OVER WHOLE BODY INCLUDING FACE, NECK, SCA...
     Dates: start: 20180306, end: 20180313
  5. LYMECYCLINE [Concomitant]
     Active Substance: LYMECYCLINE
     Indication: ACNE
     Dosage: 1 DF, 1X/DAY
     Dates: start: 20180322, end: 20180419
  6. METRONIDAZOLE. [Concomitant]
     Active Substance: METRONIDAZOLE
     Dosage: 3 DF, 1X/DAY
     Dates: start: 20180427
  7. HYDROCORTISONE. [Concomitant]
     Active Substance: HYDROCORTISONE
     Dosage: APPLY SPARINGLY ONCE OR TWICE DAILY
     Dates: start: 20180129, end: 20180212
  8. AZELAIC ACID. [Concomitant]
     Active Substance: AZELAIC ACID
     Indication: ACNE
     Dosage: 1 DF, 2X/DAY (APPLY TWICE DAILY)
     Dates: start: 20180322, end: 20180419
  9. IBUPROFEN. [Suspect]
     Active Substance: IBUPROFEN
     Dosage: UNK
     Dates: start: 20180427
  10. FEXOFENADINE [Concomitant]
     Active Substance: FEXOFENADINE\FEXOFENADINE HYDROCHLORIDE
     Indication: HYPERSENSITIVITY
     Dosage: 1 DF, AS NEEDED
     Dates: start: 20180129, end: 20180226
  11. BETAMETHASONE VALERATE. [Concomitant]
     Active Substance: BETAMETHASONE VALERATE
     Indication: RASH
     Dosage: 2 DF, 1X/DAY, SPARINGLY
     Dates: start: 20180322, end: 20180419

REACTIONS (1)
  - Thrombosis [Not Recovered/Not Resolved]

NARRATIVE: CASE EVENT DATE: 20180427
